FAERS Safety Report 8336793-0 (Version None)
Quarter: 2012Q2

REPORT INFORMATION
  Report Type: 
  Country: None (occurrence: None)
  Receive Date: 20120504
  Receipt Date: 20120427
  Transmission Date: 20120825
  Serious: Yes (Other)
  Sender: FDA-Public Use
  Company Number: JP-JNJFOC-20120501838

PATIENT

DRUGS (1)
  1. TRAMADOL HYDROCHLORIDE AND ACETAMINOPHEN [Suspect]
     Indication: PAIN
     Dosage: 4 TABLETS PER DAY 4 TIMES DAILY
     Route: 048
     Dates: end: 20120421

REACTIONS (2)
  - PHOTOPHOBIA [None]
  - TINNITUS [None]
